FAERS Safety Report 12650602 (Version 1)
Quarter: 2016Q3

REPORT INFORMATION
  Report Type: Spontaneous
  Country: US (occurrence: US)
  Receive Date: 20160815
  Receipt Date: 20160815
  Transmission Date: 20161109
  Serious: No
  Sender: FDA-Public Use
  Company Number: US-BEH-2016072490

PATIENT
  Sex: Female
  Weight: 78.91 kg

DRUGS (25)
  1. LIDOCAINE/PRILOCAINE [Concomitant]
     Active Substance: LIDOCAINE\PRILOCAINE
  2. PROBIOTIC                          /06395501/ [Concomitant]
     Active Substance: BIFIDOBACTERIUM ANIMALIS SUBSP. LACTIS
  3. FLUCOS                             /00780601/ [Concomitant]
  4. EFFEXOR [Concomitant]
     Active Substance: VENLAFAXINE HYDROCHLORIDE
  5. EPINEPHRINE. [Concomitant]
     Active Substance: EPINEPHRINE
  6. DIFLUCAN [Concomitant]
     Active Substance: FLUCONAZOLE
  7. HIZENTRA [Suspect]
     Active Substance: HUMAN IMMUNOGLOBULIN G
     Indication: IMMUNODEFICIENCY COMMON VARIABLE
     Dosage: 10 G, QW
     Route: 058
     Dates: start: 20110922
  8. VALTREX [Concomitant]
     Active Substance: VALACYCLOVIR HYDROCHLORIDE
  9. AUGMENTIN [Concomitant]
     Active Substance: AMOXICILLIN\CLAVULANATE POTASSIUM
  10. XANAX [Concomitant]
     Active Substance: ALPRAZOLAM
  11. ACIDOPHILUS [Concomitant]
     Active Substance: LACTOBACILLUS ACIDOPHILUS
  12. FLAXSEED [Concomitant]
     Active Substance: FLAX SEED
  13. TRAZODONE [Concomitant]
     Active Substance: TRAZODONE HYDROCHLORIDE
  14. LAMICTAL [Concomitant]
     Active Substance: LAMOTRIGINE
  15. FLEXERIL [Concomitant]
     Active Substance: CYCLOBENZAPRINE HYDROCHLORIDE
  16. ST MARY^S THISTLE [Concomitant]
  17. DIPHENHYDRAMINE. [Concomitant]
     Active Substance: DIPHENHYDRAMINE
  18. SPORANOX [Concomitant]
     Active Substance: ITRACONAZOLE
  19. PROVENTIL [Concomitant]
     Active Substance: ALBUTEROL
  20. AMPHOTERICIN [Concomitant]
     Active Substance: AMPHOTERICIN B
  21. MULTIVITAMIN                       /00097801/ [Concomitant]
     Active Substance: VITAMINS
  22. ACETAMINOPHEN. [Concomitant]
     Active Substance: ACETAMINOPHEN
  23. SEROQUEL [Concomitant]
     Active Substance: QUETIAPINE FUMARATE
  24. IBUPROFEN                          /00109205/ [Concomitant]
     Active Substance: IBUPROFEN
  25. DYAZIDE [Concomitant]
     Active Substance: HYDROCHLOROTHIAZIDE\TRIAMTERENE

REACTIONS (2)
  - Fungal infection [Unknown]
  - Herpes simplex [Unknown]
